FAERS Safety Report 6635239-8 (Version None)
Quarter: 2010Q1

REPORT INFORMATION
  Report Type: 
  Country: None (occurrence: None)
  Receive Date: 20100315
  Receipt Date: 20100309
  Transmission Date: 20100710
  Serious: Yes (Hospitalization, Disabling, Other)
  Sender: FDA-Public Use
  Company Number: US-GENENTECH-298783

PATIENT
  Sex: Female

DRUGS (15)
  1. XOLAIR [Suspect]
     Indication: DRUG USE FOR UNKNOWN INDICATION
  2. KLONOPIN [Suspect]
     Indication: ANXIETY
     Dosage: 0.5 MG, PRN
     Route: 048
  3. CROMOLYN SODIUM [Concomitant]
     Indication: MASTOCYTOSIS
     Dosage: 200 MG, UNK
     Route: 048
     Dates: start: 20060726
  4. FEXOFENADINE [Concomitant]
     Indication: MASTOCYTOSIS
     Dosage: 180 MG, UNK
     Route: 048
     Dates: start: 20060726
  5. HYDROXYZINE [Concomitant]
     Indication: MASTOCYTOSIS
     Dosage: 50 MG, QHS
     Route: 048
     Dates: start: 20060726
  6. SINGULAIR [Concomitant]
     Indication: DRUG USE FOR UNKNOWN INDICATION
     Dosage: 10 MG, QHS
     Route: 048
     Dates: start: 20060726
  7. PREDNISONE TAB [Concomitant]
     Indication: MASTOCYTOSIS
     Dosage: 20 MG, QD
     Route: 048
     Dates: start: 20090101
  8. PROZAC [Concomitant]
     Indication: DEPRESSION
     Dosage: 40 MG, QD
     Route: 048
  9. DIPHENHYDRAMINE HYDROCHLORIDE [Concomitant]
     Indication: ANAPHYLACTIC REACTION
     Dosage: 50 UNK, PRN
     Route: 048
  10. TRINESSA [Concomitant]
     Indication: CONTRACEPTION
     Dosage: UNK
     Route: 048
  11. ALLEGRA [Concomitant]
     Indication: DRUG USE FOR UNKNOWN INDICATION
     Dosage: 180 MG, QD
     Route: 048
  12. PRILOSEC [Concomitant]
     Indication: DRUG USE FOR UNKNOWN INDICATION
     Dosage: 40 MG, QAM
     Route: 048
  13. ZANTAC [Concomitant]
     Indication: DRUG USE FOR UNKNOWN INDICATION
     Dosage: 300 MG, QPM
     Route: 048
  14. EPIPEN [Concomitant]
     Indication: ANAPHYLACTIC REACTION
     Dosage: 0.3 UNK, PRN
  15. ASPIRIN [Concomitant]
     Indication: DRUG USE FOR UNKNOWN INDICATION
     Dosage: 325 MG, QD
     Route: 048

REACTIONS (1)
  - CEREBROVASCULAR ACCIDENT [None]
